FAERS Safety Report 10493820 (Version 2)
Quarter: 2014Q4

REPORT INFORMATION
  Report Type: Spontaneous
  Country: DE (occurrence: DE)
  Receive Date: 20141003
  Receipt Date: 20141003
  Transmission Date: 20150528
  Serious: Yes (Other)
  Sender: FDA-Public Use
  Company Number: DE-AMGEN-DEUSP2014064823

PATIENT
  Age: 76 Year
  Sex: Female
  Weight: 56 kg

DRUGS (15)
  1. NEBIVOLOL [Concomitant]
     Active Substance: NEBIVOLOL
     Indication: CARDIOVASCULAR DISORDER
  2. RASILEZ [Concomitant]
     Active Substance: ALISKIREN
     Indication: CARDIOVASCULAR DISORDER
  3. FOSTER                             /00500401/ [Concomitant]
     Active Substance: PIROXICAM
     Indication: ASTHMA
     Dosage: UNK UNK, Q12H
     Route: 048
  4. PROLIA [Suspect]
     Active Substance: DENOSUMAB
     Indication: OSTEOPOROSIS
     Dosage: UNK
     Route: 065
     Dates: start: 20130119
  5. SINGULAIR [Concomitant]
     Active Substance: MONTELUKAST SODIUM
     Indication: ARRHYTHMIA
     Dosage: 10 MG, QD
     Route: 048
  6. SPIRIVA [Concomitant]
     Active Substance: TIOTROPIUM BROMIDE MONOHYDRATE
     Indication: CHRONIC OBSTRUCTIVE PULMONARY DISEASE
  7. NEBIVOLOL [Concomitant]
     Active Substance: NEBIVOLOL
     Indication: ARRHYTHMIA
     Dosage: 5 MG, UNK
     Route: 048
  8. RASILEZ [Concomitant]
     Active Substance: ALISKIREN
     Indication: ARRHYTHMIA
     Dosage: 150 MG, UNK
     Route: 048
  9. FALITHROM [Concomitant]
     Active Substance: PHENPROCOUMON
     Indication: CARDIOVASCULAR DISORDER
     Dosage: UNK, ACCORDING TO SCHEDULE
     Route: 048
  10. FOSTER                             /00500401/ [Concomitant]
     Active Substance: PIROXICAM
     Indication: CHRONIC OBSTRUCTIVE PULMONARY DISEASE
  11. SINGULAIR [Concomitant]
     Active Substance: MONTELUKAST SODIUM
     Indication: CARDIOVASCULAR DISORDER
  12. SPIRIVA [Concomitant]
     Active Substance: TIOTROPIUM BROMIDE MONOHYDRATE
     Indication: ASTHMA
     Dosage: UNK UNK, QD
     Route: 048
  13. TORASEMID [Concomitant]
     Active Substance: TORSEMIDE
     Indication: ARRHYTHMIA
     Dosage: 5 MG, QD
     Route: 048
  14. TORASEMID [Concomitant]
     Active Substance: TORSEMIDE
     Indication: CARDIOVASCULAR DISORDER
  15. DEKRISTOL [Concomitant]
     Active Substance: CHOLECALCIFEROL
     Indication: OSTEOPOROSIS
     Dosage: UNK, 14/28 D
     Route: 048
     Dates: start: 2013

REACTIONS (10)
  - Subcutaneous abscess [Not Recovered/Not Resolved]
  - Infection [Not Recovered/Not Resolved]
  - Pharyngeal abscess [Not Recovered/Not Resolved]
  - Pharyngitis [Not Recovered/Not Resolved]
  - Nodule [Unknown]
  - Flushing [Not Recovered/Not Resolved]
  - Photosensitivity reaction [Not Recovered/Not Resolved]
  - Skin mass [Recovering/Resolving]
  - Erythema [Recovering/Resolving]
  - Pruritus [Not Recovered/Not Resolved]

NARRATIVE: CASE EVENT DATE: 20130120
